FAERS Safety Report 4887691-6 (Version None)
Quarter: 2006Q1

REPORT INFORMATION
  Report Type: 
  Country: None (occurrence: None)
  Receive Date: 20060123
  Receipt Date: 20051214
  Transmission Date: 20060701
  Serious: Yes (Death, Hospitalization)
  Sender: FDA-Public Use
  Company Number: JP-AVENTIS-200513806JP

PATIENT
  Age: 69 Year
  Sex: Male
  Weight: 55 kg

DRUGS (2)
  1. TAXOTERE [Suspect]
     Indication: LUNG NEOPLASM MALIGNANT
     Route: 041
     Dates: start: 20051110, end: 20051110
  2. RADIOTHERAPY [Suspect]
     Dosage: DOSE: 60 GY
     Dates: start: 20050913, end: 20051110

REACTIONS (6)
  - HAEMORRHAGE [None]
  - INTERSTITIAL LUNG DISEASE [None]
  - METASTATIC NEOPLASM [None]
  - MOUTH HAEMORRHAGE [None]
  - MUCOUS MEMBRANE DISORDER [None]
  - ORAL MUCOSA EROSION [None]
